FAERS Safety Report 5470917-8 (Version None)
Quarter: 2007Q3

REPORT INFORMATION
  Report Type: 
  Country: None (occurrence: None)
  Receive Date: 20070928
  Receipt Date: 20070913
  Transmission Date: 20080115
  Serious: Yes (Hospitalization)
  Sender: FDA-Public Use
  Company Number: NL-AMGEN-UK243761

PATIENT
  Sex: Female
  Weight: 55 kg

DRUGS (5)
  1. NEULASTA [Suspect]
     Indication: CHEMOTHERAPY
     Route: 058
     Dates: start: 20070804, end: 20070831
  2. DOXORUBICIN HYDROCHLORIDE [Concomitant]
     Route: 065
     Dates: start: 20070803
  3. ENDOXAN [Concomitant]
     Route: 065
     Dates: start: 20070803
  4. METOCLOPRAMIDE [Concomitant]
     Route: 048
     Dates: start: 20070803
  5. KYTRIL [Concomitant]
     Route: 048
     Dates: start: 20070803, end: 20070805

REACTIONS (1)
  - GLOMERULONEPHRITIS [None]
